FAERS Safety Report 22318517 (Version 1)
Quarter: 2023Q2

REPORT INFORMATION
  Report Type: Spontaneous
  Country: US (occurrence: US)
  Receive Date: 20230515
  Receipt Date: 20230515
  Transmission Date: 20230721
  Serious: Yes (Hospitalization, Other)
  Sender: FDA-Public Use
  Company Number: US-APOTEX-2023AP008149

PATIENT
  Age: 32 Year
  Sex: Male

DRUGS (1)
  1. LITHIUM [Suspect]
     Active Substance: LITHIUM
     Indication: Product used for unknown indication
     Dosage: UNK
     Route: 065

REACTIONS (8)
  - Overdose [Recovering/Resolving]
  - Altered state of consciousness [Recovering/Resolving]
  - Mental status changes [Recovering/Resolving]
  - Anion gap decreased [Recovering/Resolving]
  - Blood creatinine increased [Recovering/Resolving]
  - Lethargy [Recovering/Resolving]
  - Condition aggravated [Recovering/Resolving]
  - Toxicity to various agents [Recovering/Resolving]
